FAERS Safety Report 5152853-X (Version None)
Quarter: 2006Q4

REPORT INFORMATION
  Report Type: 
  Country: None (occurrence: None)
  Receive Date: 20060918
  Receipt Date: 20051007
  Transmission Date: 20070319
  Serious: Yes (Other)
  Sender: FDA-Public Use
  Company Number: PHEH2005US10839

PATIENT
  Age: 55 Year
  Sex: Female

DRUGS (4)
  1. FEMARA [Suspect]
     Indication: BREAST CANCER
     Dosage: 2.5 MG, QD
     Dates: start: 20050304, end: 20050524
  2. CALCIUM (CALCIUM) [Concomitant]
  3. CALTRATE +D (CALCIUM CARBONATE, VITAMIN D NOS) [Concomitant]
  4. VITAMIN E [Concomitant]

REACTIONS (14)
  - BLADDER PROLAPSE [None]
  - CONFUSIONAL STATE [None]
  - COORDINATION ABNORMAL [None]
  - DIZZINESS [None]
  - FALL [None]
  - FEELING HOT [None]
  - GENITAL DISORDER FEMALE [None]
  - HYPERHIDROSIS [None]
  - INSOMNIA [None]
  - NASAL DRYNESS [None]
  - NERVOUSNESS [None]
  - URINARY INCONTINENCE [None]
  - VERTIGO [None]
  - VISION BLURRED [None]
